FAERS Safety Report 16994921 (Version 1)
Quarter: 2019Q4

REPORT INFORMATION
  Report Type: Report from Study
  Country: US (occurrence: US)
  Receive Date: 20191105
  Receipt Date: 20191105
  Transmission Date: 20200122
  Serious: Yes (Hospitalization, Other)
  Sender: FDA-Public Use
  Company Number: PHHO2017US016674

PATIENT
  Age: 13 Year
  Sex: Male
  Weight: 63 kg

DRUGS (2)
  1. HIZENTRA [Concomitant]
     Active Substance: HUMAN IMMUNOGLOBULIN G
     Indication: INFECTION PROPHYLAXIS
     Dosage: 100 ML, SUB Q2W
     Route: 065
     Dates: start: 20171106
  2. KYMRIAH [Suspect]
     Active Substance: TISAGENLECLEUCEL
     Indication: ACUTE LYMPHOCYTIC LEUKAEMIA
     Dosage: 5X10^8 T CELLS/KG
     Route: 042
     Dates: start: 20160119

REACTIONS (6)
  - Pneumonia [Recovered/Resolved]
  - Crohn^s disease [Not Recovered/Not Resolved]
  - Pyrexia [Recovered/Resolved]
  - Clostridium difficile colitis [Recovered/Resolved]
  - Gastroenteritis Escherichia coli [Recovered/Resolved]
  - Gastroenteritis salmonella [Recovered/Resolved]

NARRATIVE: CASE EVENT DATE: 20171128
